FAERS Safety Report 14676986 (Version 2)
Quarter: 2018Q2

REPORT INFORMATION
  Report Type: Spontaneous
  Country: DE (occurrence: DE)
  Receive Date: 20180324
  Receipt Date: 20180430
  Transmission Date: 20180711
  Serious: Yes (Other)
  Sender: FDA-Public Use
  Company Number: DE-AMGEN-DEUSP2018038150

PATIENT
  Age: 69 Year
  Sex: Male
  Weight: 90 kg

DRUGS (8)
  1. PROLIA [Suspect]
     Active Substance: DENOSUMAB
     Dosage: 60 MG, Q6MO
     Route: 058
     Dates: start: 20160120
  2. PROLIA [Suspect]
     Active Substance: DENOSUMAB
     Dosage: 60 MG, Q6MO
     Route: 058
     Dates: start: 20150114
  3. PROLIA [Suspect]
     Active Substance: DENOSUMAB
     Dosage: 60 MG, Q6MO
     Route: 058
     Dates: start: 20160908
  4. PREDNISONE. [Concomitant]
     Active Substance: PREDNISONE
     Indication: RHEUMATOID ARTHRITIS
     Dosage: 10 MG, UNK
  5. PROLIA [Suspect]
     Active Substance: DENOSUMAB
     Indication: OSTEOPOROSIS
     Dosage: 60 MG, Q6MO
     Route: 058
     Dates: start: 20140708
  6. PROLIA [Suspect]
     Active Substance: DENOSUMAB
     Dosage: 60 MG, Q6MO
     Route: 058
     Dates: start: 20170922, end: 20170922
  7. PROLIA [Suspect]
     Active Substance: DENOSUMAB
     Dosage: 60 MG, Q6MO
     Route: 058
     Dates: start: 20140708
  8. PROLIA [Suspect]
     Active Substance: DENOSUMAB
     Dosage: 60 MG, Q6MO
     Route: 058
     Dates: start: 20170307

REACTIONS (1)
  - Squamous cell carcinoma of the oral cavity [Recovering/Resolving]

NARRATIVE: CASE EVENT DATE: 201711
